FAERS Safety Report 5978135-1 (Version None)
Quarter: 2008Q4

REPORT INFORMATION
  Report Type: 
  Country: None (occurrence: None)
  Receive Date: 20081204
  Receipt Date: 20081120
  Transmission Date: 20090506
  Serious: Yes (Hospitalization)
  Sender: FDA-Public Use
  Company Number: US-RB-006932-08

PATIENT
  Age: 20 Year
  Sex: Male

DRUGS (9)
  1. DEXTROMETHORPHAN HYDROBROMIDE [Suspect]
     Dosage: LARGE AMOUNT INGESTED.
     Route: 048
  2. ESCITALOPRAM [Suspect]
  3. ARIPIPRAZOLE [Suspect]
  4. BENZATROPINE [Suspect]
  5. CHLORPHENIRAMINE MALEATE [Suspect]
  6. NICOTINE [Suspect]
  7. MARIJUANA [Concomitant]
  8. OPIATES [Concomitant]
  9. PHENCYCLIDINE [Concomitant]

REACTIONS (13)
  - CONFUSIONAL STATE [None]
  - DRUG INTERACTION [None]
  - DYSARTHRIA [None]
  - FLUSHING [None]
  - HYPERHIDROSIS [None]
  - HYPERREFLEXIA [None]
  - LETHARGY [None]
  - MUSCLE RIGIDITY [None]
  - OVERDOSE [None]
  - PYREXIA [None]
  - SEROTONIN SYNDROME [None]
  - SINUS TACHYCARDIA [None]
  - TREMOR [None]
